FAERS Safety Report 8078481-4 (Version None)
Quarter: 2012Q1

REPORT INFORMATION
  Report Type: 
  Country: None (occurrence: None)
  Receive Date: 20120127
  Receipt Date: 20120127
  Transmission Date: 20120608
  Serious: Yes (Death, Life-Threatening, Hospitalization)
  Sender: FDA-Public Use
  Company Number: None

PATIENT
  Age: 63 Year
  Sex: Male
  Weight: 92.9874 kg

DRUGS (1)
  1. GLIADEL [Suspect]
     Indication: QUALITY OF LIFE DECREASED
     Dosage: 6 ONCE
     Dates: start: 20110819

REACTIONS (1)
  - CENTRAL NERVOUS SYSTEM INFECTION [None]
